FAERS Safety Report 14788602 (Version 3)
Quarter: 2018Q3

REPORT INFORMATION
  Report Type: Spontaneous
  Country: GB (occurrence: GB)
  Receive Date: 20180423
  Receipt Date: 20180731
  Transmission Date: 20181010
  Serious: Yes (Hospitalization, Other)
  Sender: FDA-Public Use
  Company Number: GB-SUN PHARMACEUTICAL INDUSTRIES LTD-2018RR-170579

PATIENT
  Age: 35 Year
  Sex: Female
  Weight: 89 kg

DRUGS (23)
  1. HALOPERIDOL. [Suspect]
     Active Substance: HALOPERIDOL
     Dosage: UNK ()
     Route: 048
  2. LACTULOSE. [Concomitant]
     Active Substance: LACTULOSE
     Dosage: 10 ML, QD
     Route: 065
  3. PARACETAMOL [Concomitant]
     Active Substance: ACETAMINOPHEN
     Indication: PRODUCT USED FOR UNKNOWN INDICATION
     Dosage: 1 G, PRN
     Route: 048
  4. SODIUM VALPROATE [Concomitant]
     Active Substance: VALPROATE SODIUM
     Indication: PRODUCT USED FOR UNKNOWN INDICATION
     Dosage: UNK ()
     Route: 048
     Dates: start: 2018
  5. LORAZEPAM. [Suspect]
     Active Substance: LORAZEPAM
     Indication: PRODUCT USED FOR UNKNOWN INDICATION
     Dosage: 2 MG, UNK
     Route: 048
     Dates: start: 20180108, end: 20180120
  6. FLUTICASONE. [Concomitant]
     Active Substance: FLUTICASONE
     Indication: PRODUCT USED FOR UNKNOWN INDICATION
     Dosage: 2 DF, BID
     Route: 055
  7. CLONAZEPAM. [Suspect]
     Active Substance: CLONAZEPAM
     Indication: PRODUCT USED FOR UNKNOWN INDICATION
     Dosage: 1 MG, TID
     Route: 048
     Dates: start: 201801, end: 20180120
  8. CLOZARIL [Suspect]
     Active Substance: CLOZAPINE
     Indication: PSYCHOTIC DISORDER
     Dosage: 100 MG, BID
     Route: 048
     Dates: start: 20180123, end: 20180212
  9. PROCYCLIDINE [Suspect]
     Active Substance: PROCYCLIDINE
     Indication: PRODUCT USED FOR UNKNOWN INDICATION
     Dosage: UNK ()
     Route: 048
  10. PROCYCLIDINE [Suspect]
     Active Substance: PROCYCLIDINE
     Dosage: 5 MG, PRN
     Route: 048
  11. LACTULOSE. [Concomitant]
     Active Substance: LACTULOSE
     Indication: PRODUCT USED FOR UNKNOWN INDICATION
     Dosage: 15 ML, QD
     Route: 048
     Dates: start: 20180205
  12. CLONAZEPAM. [Suspect]
     Active Substance: CLONAZEPAM
     Dosage: UNK ()
     Route: 048
     Dates: start: 2018
  13. LACTULOSE. [Concomitant]
     Active Substance: LACTULOSE
     Dosage: 7.5 ML, QD
     Route: 065
  14. CLOZARIL [Suspect]
     Active Substance: CLOZAPINE
     Indication: PERSONALITY DISORDER
  15. SENNA [Concomitant]
     Active Substance: SENNA LEAF\SENNOSIDES\SENNOSIDES A AND B
     Indication: PRODUCT USED FOR UNKNOWN INDICATION
     Dosage: UNK ()
     Route: 048
     Dates: start: 201802
  16. OLANZAPINE. [Suspect]
     Active Substance: OLANZAPINE
     Indication: PRODUCT USED FOR UNKNOWN INDICATION
     Dosage: 5 MG, QD
     Route: 048
     Dates: start: 20180108, end: 20180120
  17. OLANZAPINE. [Suspect]
     Active Substance: OLANZAPINE
     Dosage: UNK ()
     Route: 048
     Dates: end: 20180204
  18. CLONAZEPAM. [Suspect]
     Active Substance: CLONAZEPAM
     Dosage: 1 MG, BID
     Route: 048
     Dates: start: 20180108, end: 201801
  19. LAMOTRIGINE A [Suspect]
     Active Substance: LAMOTRIGINE
     Indication: PRODUCT USED FOR UNKNOWN INDICATION
     Dosage: 100 MG, BID
     Route: 048
  20. LAMOTRIGINE A [Suspect]
     Active Substance: LAMOTRIGINE
     Dosage: UNK ()
     Route: 048
  21. HALOPERIDOL. [Suspect]
     Active Substance: HALOPERIDOL
     Indication: PRODUCT USED FOR UNKNOWN INDICATION
     Dosage: 5 MG, BID
     Route: 048
  22. CLOZARIL [Suspect]
     Active Substance: CLOZAPINE
     Indication: SCHIZOPHRENIA
  23. SODIUM VALPROATE [Concomitant]
     Active Substance: VALPROATE SODIUM
     Dosage: 1 G, BID
     Route: 048

REACTIONS (11)
  - Acute kidney injury [Recovered/Resolved]
  - Urinary retention [Recovered/Resolved]
  - Renal impairment [Recovering/Resolving]
  - Dehydration [Recovering/Resolving]
  - Vomiting [Recovering/Resolving]
  - Product use in unapproved indication [Unknown]
  - Constipation [Recovered/Resolved]
  - Malaise [Recovering/Resolving]
  - Hypophagia [Recovering/Resolving]
  - Urinary tract infection [Recovered/Resolved]
  - Lethargy [Recovering/Resolving]

NARRATIVE: CASE EVENT DATE: 20180123
